FAERS Safety Report 5214387-3 (Version None)
Quarter: 2007Q1

REPORT INFORMATION
  Report Type: 
  Country: None (occurrence: None)
  Receive Date: 20070122
  Receipt Date: 20070117
  Transmission Date: 20070707
  Serious: Yes (Other)
  Sender: FDA-Public Use
  Company Number: DE-GLAXOSMITHKLINE-D0051858A

PATIENT
  Age: 78 Year
  Sex: Male

DRUGS (8)
  1. AUGMENTIN '125' [Suspect]
     Dosage: 875MG THREE TIMES PER DAY
     Route: 048
     Dates: start: 20061220
  2. ACTRAPID [Concomitant]
     Route: 065
  3. HUMALOG [Concomitant]
     Route: 065
  4. SALBULAIR [Concomitant]
     Route: 065
  5. TRAMADOL HCL [Concomitant]
     Route: 065
  6. TOREM COR [Concomitant]
     Route: 065
  7. ATMADISC [Concomitant]
     Route: 065
  8. ENALAPRIL MALEATE [Concomitant]
     Route: 065

REACTIONS (2)
  - HYPOGLYCAEMIA [None]
  - INCORRECT DOSE ADMINISTERED [None]
